FAERS Safety Report 7775955-8 (Version None)
Quarter: 2011Q3

REPORT INFORMATION
  Report Type: 
  Country: None (occurrence: None)
  Receive Date: 20110923
  Receipt Date: 20110915
  Transmission Date: 20111222
  Serious: Yes (Hospitalization, Other)
  Sender: FDA-Public Use
  Company Number: US-MERCK-1108USA01130

PATIENT
  Age: 65 Year
  Sex: Female

DRUGS (1)
  1. FOSAMAX [Suspect]
     Indication: OSTEOPENIA
     Route: 048
     Dates: start: 19990101, end: 20101101

REACTIONS (10)
  - IMPAIRED HEALING [None]
  - CARDIAC DISORDER [None]
  - BLOOD PRESSURE ABNORMAL [None]
  - HYPERTENSION [None]
  - DIABETES MELLITUS [None]
  - FALL [None]
  - FEMUR FRACTURE [None]
  - FRACTURE DELAYED UNION [None]
  - TOOTH DISORDER [None]
  - OSTEOPOROSIS [None]
